FAERS Safety Report 23862334 (Version 1)
Quarter: 2024Q2

REPORT INFORMATION
  Report Type: Report from Study
  Country: US (occurrence: US)
  Receive Date: 20240516
  Receipt Date: 20240516
  Transmission Date: 20240716
  Serious: Yes (Death, Hospitalization)
  Sender: FDA-Public Use
  Company Number: US-HBP-2023US029953

PATIENT
  Age: 76 Year
  Sex: Male

DRUGS (3)
  1. VALCHLOR [Suspect]
     Active Substance: MECHLORETHAMINE
     Indication: Cutaneous T-cell lymphoma
     Dosage: THIN FILM, 3/WEEK
     Route: 061
     Dates: start: 20170314, end: 2023
  2. VALCHLOR [Suspect]
     Active Substance: MECHLORETHAMINE
     Dosage: THIN FILM, 3/WEEK
     Route: 061
     Dates: start: 2023
  3. TRIAMCINOLONE [Concomitant]
     Active Substance: TRIAMCINOLONE
     Dosage: UNK, UNKNOWN

REACTIONS (10)
  - Death [Fatal]
  - Hypotension [Unknown]
  - Diarrhoea [Unknown]
  - Off label use [Unknown]
  - Intentional dose omission [Unknown]
  - Skin warm [Not Recovered/Not Resolved]
  - Skin tightness [Not Recovered/Not Resolved]
  - Pain of skin [Not Recovered/Not Resolved]
  - Erythema [Not Recovered/Not Resolved]
  - Skin irritation [Not Recovered/Not Resolved]

NARRATIVE: CASE EVENT DATE: 20170314
